FAERS Safety Report 12766776 (Version 1)
Quarter: 2016Q3

REPORT INFORMATION
  Report Type: Spontaneous
  Country: GB (occurrence: GB)
  Receive Date: 20160921
  Receipt Date: 20160921
  Transmission Date: 20161109
  Serious: Yes (Death, Hospitalization)
  Sender: FDA-Public Use
  Company Number: GB-JNJFOC-20160917796

PATIENT
  Age: 30 Year
  Sex: Male

DRUGS (1)
  1. COCODAMOL [Suspect]
     Active Substance: ACETAMINOPHEN\CODEINE PHOSPHATE
     Indication: BACK PAIN
     Route: 048

REACTIONS (4)
  - Systemic inflammatory response syndrome [Fatal]
  - Hepatic failure [Not Recovered/Not Resolved]
  - Haemorrhagic necrotic pancreatitis [Not Recovered/Not Resolved]
  - Accidental overdose [Fatal]
